FAERS Safety Report 16190021 (Version 1)
Quarter: 2019Q2

REPORT INFORMATION
  Report Type: Spontaneous
  Country: US (occurrence: US)
  Receive Date: 20190412
  Receipt Date: 20190412
  Transmission Date: 20190711
  Serious: Yes (Other)
  Sender: FDA-Public Use
  Company Number: PHHY2019US084466

PATIENT

DRUGS (1)
  1. ETANERCEPT [Suspect]
     Active Substance: ETANERCEPT
     Indication: NEUROCYSTICERCOSIS
     Route: 065

REACTIONS (2)
  - Product use in unapproved indication [Unknown]
  - General physical health deterioration [Unknown]
